FAERS Safety Report 25374694 (Version 1)
Quarter: 2025Q2

REPORT INFORMATION
  Report Type: Spontaneous
  Country: IT (occurrence: IT)
  Receive Date: 20250529
  Receipt Date: 20250529
  Transmission Date: 20250716
  Serious: Yes (Hospitalization, Other)
  Sender: BRISTOL-MYERS SQUIBB COMPANY
  Company Number: None

PATIENT
  Age: 66 Year
  Sex: Male

DRUGS (4)
  1. OPDIVO [Suspect]
     Active Substance: NIVOLUMAB
     Indication: Renal cancer stage IV
     Dosage: 3 MG/MK EVERY 21 DAYS COMBINED WITH IPILIMUMAB 1 MG/KG
     Route: 042
     Dates: start: 20250311, end: 20250506
  2. OPDIVO [Suspect]
     Active Substance: NIVOLUMAB
     Indication: Metastases to lung
  3. YERVOY [Suspect]
     Active Substance: IPILIMUMAB
     Indication: Renal cancer stage IV
     Dosage: 1 MG/KG IN COMBINATION WITH NIVOLUMAB
     Route: 042
     Dates: start: 20250311, end: 20250506
  4. ASPIRIN LYSINE [Suspect]
     Active Substance: ASPIRIN LYSINE
     Indication: Aortic aneurysm
     Dosage: 75 MG PER DAY
     Route: 048

REACTIONS (3)
  - Haemoptysis [Recovered/Resolved]
  - Pyrexia [Recovered/Resolved]
  - Tumour pseudoprogression [Not Recovered/Not Resolved]

NARRATIVE: CASE EVENT DATE: 20250319
